FAERS Safety Report 16651722 (Version 1)
Quarter: 2019Q3

REPORT INFORMATION
  Report Type: Spontaneous
  Country: AT (occurrence: AT)
  Receive Date: 20190731
  Receipt Date: 20190731
  Transmission Date: 20191004
  Serious: Yes (Hospitalization, Other)
  Sender: FDA-Public Use
  Company Number: AT-JNJFOC-20190633510

PATIENT
  Age: 36 Year
  Sex: Male

DRUGS (39)
  1. DEPAKINE CR [Interacting]
     Active Substance: VALPROATE SODIUM
     Route: 048
     Dates: start: 20190209, end: 20190307
  2. LYRICA [Concomitant]
     Active Substance: PREGABALIN
     Dates: start: 20190213, end: 20190228
  3. EUCREAS [Concomitant]
     Active Substance: METFORMIN HYDROCHLORIDE\VILDAGLIPTIN
     Dosage: 50/100
     Dates: start: 20190214, end: 20190227
  4. METHOTREXAAT                       /00113801/ [Concomitant]
     Active Substance: METHOTREXATE SODIUM
     Dosage: SINCE A LONG TIME
     Route: 048
     Dates: start: 20190325
  5. DEPAKINE CR [Interacting]
     Active Substance: VALPROATE SODIUM
     Route: 048
     Dates: start: 20190308, end: 20190310
  6. ZELDOX [Concomitant]
     Active Substance: ZIPRASIDONE
     Dates: start: 20190226, end: 20190227
  7. METOHEXAL [Concomitant]
     Active Substance: METOPROLOL
     Dates: start: 20190326, end: 20190327
  8. TOPAMAX [Suspect]
     Active Substance: TOPIRAMATE
     Route: 048
     Dates: start: 20190322
  9. DEPAKINE CR [Interacting]
     Active Substance: VALPROATE SODIUM
     Route: 048
     Dates: start: 20190314, end: 20190315
  10. CIPRALEX [Concomitant]
     Active Substance: ESCITALOPRAM OXALATE
     Dosage: SINCE A LONG TIME
  11. TRITTICO [Concomitant]
     Active Substance: TRAZODONE HYDROCHLORIDE
     Dates: start: 20190319, end: 20190319
  12. TRITTICO [Concomitant]
     Active Substance: TRAZODONE HYDROCHLORIDE
     Dates: start: 20190320, end: 20190321
  13. SEROQUEL XR [Concomitant]
     Active Substance: QUETIAPINE FUMARATE
     Dates: end: 20190208
  14. ZELDOX [Concomitant]
     Active Substance: ZIPRASIDONE
     Dates: start: 20190228, end: 20190302
  15. EUCREAS [Concomitant]
     Active Substance: METFORMIN HYDROCHLORIDE\VILDAGLIPTIN
     Dosage: 50/1000
     Route: 048
     Dates: start: 20190228
  16. TOPAMAX [Suspect]
     Active Substance: TOPIRAMATE
     Route: 048
     Dates: start: 201903
  17. DEPAKINE CR [Interacting]
     Active Substance: VALPROATE SODIUM
     Route: 048
     Dates: start: 20190311, end: 20190313
  18. ABILIFY [Concomitant]
     Active Substance: ARIPIPRAZOLE
     Dates: start: 20190213, end: 20190313
  19. LYRICA [Concomitant]
     Active Substance: PREGABALIN
     Dates: end: 20190212
  20. LYRICA [Concomitant]
     Active Substance: PREGABALIN
     Dates: start: 20190307, end: 20190312
  21. LYRICA [Concomitant]
     Active Substance: PREGABALIN
     Dates: start: 20190313
  22. LYRICA [Concomitant]
     Active Substance: PREGABALIN
  23. METOHEXAL [Concomitant]
     Active Substance: METOPROLOL
     Dates: end: 20190325
  24. ZELDOX [Concomitant]
     Active Substance: ZIPRASIDONE
     Dates: start: 20190305
  25. ABILIFY [Concomitant]
     Active Substance: ARIPIPRAZOLE
     Dates: start: 20190314, end: 20190318
  26. TRITTICO [Concomitant]
     Active Substance: TRAZODONE HYDROCHLORIDE
     Dates: start: 20190322
  27. LYRICA [Concomitant]
     Active Substance: PREGABALIN
     Dates: start: 20190301, end: 20190306
  28. OLEOVIT D3 [Concomitant]
     Active Substance: CHOLECALCIFEROL
     Route: 048
     Dates: start: 20190310
  29. METHOTREXAAT                       /00113801/ [Concomitant]
     Active Substance: METHOTREXATE SODIUM
     Route: 048
     Dates: start: 20190326, end: 20190327
  30. DEPAKINE CR [Interacting]
     Active Substance: VALPROATE SODIUM
     Indication: PRODUCT USED FOR UNKNOWN INDICATION
     Route: 048
     Dates: start: 20190208, end: 20190208
  31. RIVOTRIL [Concomitant]
     Active Substance: CLONAZEPAM
     Dosage: SINCE LONG TIME
  32. ABILIFY [Concomitant]
     Active Substance: ARIPIPRAZOLE
     Dates: end: 20190212
  33. INEGY [Concomitant]
     Active Substance: EZETIMIBE\SIMVASTATIN
     Dosage: 10/20
     Route: 048
  34. TOPAMAX [Suspect]
     Active Substance: TOPIRAMATE
     Indication: PRODUCT USED FOR UNKNOWN INDICATION
     Route: 048
     Dates: end: 20190321
  35. SEROQUEL XR [Concomitant]
     Active Substance: QUETIAPINE FUMARATE
     Dates: start: 20190209
  36. ZELDOX [Concomitant]
     Active Substance: ZIPRASIDONE
     Dates: start: 20190303, end: 20190304
  37. ABILIFY [Concomitant]
     Active Substance: ARIPIPRAZOLE
     Dates: start: 20190319
  38. METOHEXAL [Concomitant]
     Active Substance: METOPROLOL
     Dates: start: 20190328
  39. METHOTREXAAT                       /00113801/ [Concomitant]
     Active Substance: METHOTREXATE SODIUM
     Route: 048
     Dates: start: 20190328

REACTIONS (3)
  - Hospitalisation [Unknown]
  - Drug interaction [Recovered/Resolved]
  - Hyperammonaemia [Recovered/Resolved]

NARRATIVE: CASE EVENT DATE: 20190208
